FAERS Safety Report 9776805 (Version 4)
Quarter: 2014Q1

REPORT INFORMATION
  Report Type: Spontaneous
  Country: FR (occurrence: FR)
  Receive Date: 20131220
  Receipt Date: 20140128
  Transmission Date: 20141002
  Serious: Yes (Other)
  Sender: FDA-Public Use
  Company Number: FR-ASTRAZENECA-2013SE72918

PATIENT
  Age: 41 Year
  Sex: Male
  Weight: 138 kg

DRUGS (7)
  1. XEROQUEL [Suspect]
     Indication: BIPOLAR DISORDER
     Route: 048
     Dates: start: 201111, end: 201209
  2. XEROQUEL [Suspect]
     Indication: BIPOLAR DISORDER
     Route: 048
     Dates: start: 201209, end: 2013
  3. XEROQUEL [Suspect]
     Indication: BIPOLAR DISORDER
     Route: 048
     Dates: start: 2013, end: 2013
  4. XEROQUEL [Suspect]
     Indication: BIPOLAR DISORDER
     Route: 048
     Dates: start: 2013
  5. LEVOTHYROX [Concomitant]
     Indication: HYPOTHYROIDISM
  6. LEVOTHYROX [Concomitant]
     Indication: HYPOTHYROIDISM
  7. RENITEC [Concomitant]

REACTIONS (7)
  - Bipolar disorder [Unknown]
  - Weight increased [Recovering/Resolving]
  - Hypoglycaemia [Recovered/Resolved]
  - Hypothyroidism [Unknown]
  - Middle insomnia [Not Recovered/Not Resolved]
  - Dizziness [Recovered/Resolved]
  - Off label use [Recovering/Resolving]
